FAERS Safety Report 15289203 (Version 1)
Quarter: 2018Q3

REPORT INFORMATION
  Report Type: Spontaneous
  Country: US (occurrence: US)
  Receive Date: 20180803
  Receipt Date: 20180803
  Transmission Date: 20181010
  Serious: No
  Sender: FDA-Public Use
  Company Number: None

PATIENT
  Age: 47 Year
  Sex: Female
  Weight: 85.5 kg

DRUGS (6)
  1. MAGNESIUM [Concomitant]
     Active Substance: MAGNESIUM
  2. CYCLOBENZAPRINE. [Concomitant]
     Active Substance: CYCLOBENZAPRINE
  3. MELATONIN [Concomitant]
     Active Substance: MELATONIN
  4. CLONAZEPAM. [Suspect]
     Active Substance: CLONAZEPAM
  5. COPAXONE [Suspect]
     Active Substance: GLATIRAMER ACETATE
     Indication: MULTIPLE SCLEROSIS
     Dates: start: 20171127, end: 20180611
  6. DULOXITINE [Concomitant]

REACTIONS (2)
  - Constipation [None]
  - Anal incontinence [None]

NARRATIVE: CASE EVENT DATE: 20180611
